FAERS Safety Report 5567052-7 (Version None)
Quarter: 2007Q4

REPORT INFORMATION
  Report Type: 
  Country: None (occurrence: None)
  Receive Date: 20071219
  Receipt Date: 20071212
  Transmission Date: 20080405
  Serious: Yes (Death)
  Sender: FDA-Public Use
  Company Number: JP-ALLERGAN-0713765US

PATIENT
  Sex: Male

DRUGS (9)
  1. BOTULINUM TOXIN TYPE A - GENERAL [Suspect]
     Indication: FACIAL SPASM
     Dosage: 10 UNITS, SINGLE
     Route: 030
     Dates: start: 20041129, end: 20041129
  2. BOTULINUM TOXIN TYPE A - GENERAL [Suspect]
     Dosage: 12.5 UNITS, SINGLE
     Route: 030
     Dates: start: 20011022, end: 20011022
  3. BOTULINUM TOXIN TYPE A - GENERAL [Suspect]
     Dosage: 12.5 UNITS, SINGLE
     Route: 030
     Dates: start: 20020225, end: 20020225
  4. BOTULINUM TOXIN TYPE A - GENERAL [Suspect]
     Dosage: 22.5 UNITS, SINGLE
     Route: 030
     Dates: start: 20020701, end: 20020701
  5. BOTULINUM TOXIN TYPE A - GENERAL [Suspect]
     Dosage: 16.25 UNITS, SINGLE
     Route: 030
     Dates: start: 20021016, end: 20021016
  6. BOTULINUM TOXIN TYPE A - GENERAL [Suspect]
     Dosage: 17.5 UNITS, SINGLE
     Route: 030
     Dates: start: 20030210, end: 20030210
  7. BOTULINUM TOXIN TYPE A - GENERAL [Suspect]
     Dosage: 10 UNITS, SINGLE
     Route: 030
     Dates: start: 20030602, end: 20030602
  8. BOTULINUM TOXIN TYPE A - GENERAL [Suspect]
     Dosage: 12.5 UNITS, SINGLE
     Route: 030
     Dates: start: 20031020, end: 20031020
  9. BOTULINUM TOXIN TYPE A - GENERAL [Suspect]
     Dosage: 7.5 UNITS, SINGLE
     Route: 030
     Dates: start: 20040517, end: 20040517

REACTIONS (1)
  - HEPATIC NEOPLASM MALIGNANT [None]
